FAERS Safety Report 6742521-2 (Version None)
Quarter: 2010Q2

REPORT INFORMATION
  Report Type: 
  Country: None (occurrence: None)
  Receive Date: 20100524
  Receipt Date: 20090806
  Transmission Date: 20101027
  Serious: No
  Sender: FDA-Public Use
  Company Number: P-CERE 203

PATIENT
  Age: 12 Year
  Sex: Female
  Weight: 29 kg

DRUGS (2)
  1. CEREDASE [Suspect]
     Indication: GAUCHER'S DISEASE
     Dosage: 30 U/KG, Q2W, INTRAVENOUS; 60 U/KG, QW,
     Route: 042
     Dates: start: 19931001, end: 19960101
  2. CEREDASE [Suspect]
     Indication: GAUCHER'S DISEASE
     Dosage: 30 U/KG, Q2W, INTRAVENOUS; 60 U/KG, QW,
     Route: 042
     Dates: start: 19960301

REACTIONS (3)
  - CHEST PAIN [None]
  - DYSPNOEA [None]
  - GAUCHER'S DISEASE [None]
